FAERS Safety Report 8102576 (Version 4)
Quarter: 2013Q4

REPORT INFORMATION
  Report Type: Spontaneous
  Country: US (occurrence: US)
  Receive Date: 20110823
  Receipt Date: 20131127
  Transmission Date: 20140711
  Serious: Yes (Death, Hospitalization)
  Sender: FDA-Public Use
  Company Number: US-GLAXOSMITHKLINE-A0915577A

PATIENT
  Age: 68 Year
  Sex: Female

DRUGS (1)
  1. AVANDIA [Suspect]
     Indication: DIABETES MELLITUS
     Dosage: 4MG PER DAY
     Route: 048
     Dates: start: 1999, end: 2001

REACTIONS (10)
  - Ventricular fibrillation [Fatal]
  - Ischaemic cardiomyopathy [Unknown]
  - Cardiac failure congestive [Unknown]
  - Coronary artery disease [Unknown]
  - Supraventricular tachycardia [Unknown]
  - Renal failure [Unknown]
  - Stent placement [Unknown]
  - Angioplasty [Unknown]
  - Cardiac pacemaker insertion [Unknown]
  - Myocardial infarction [Unknown]
